FAERS Safety Report 11994224 (Version 1)
Quarter: 2016Q1

REPORT INFORMATION
  Report Type: Spontaneous
  Country: GB (occurrence: GB)
  Receive Date: 20160203
  Receipt Date: 20160203
  Transmission Date: 20160526
  Serious: Yes (Other)
  Sender: FDA-Public Use
  Company Number: GB-TEVA-628946ACC

PATIENT
  Age: 59 Year
  Sex: Male
  Weight: 62 kg

DRUGS (6)
  1. CHAMPIX [Concomitant]
     Active Substance: VARENICLINE TARTRATE
     Dosage: USE AS DIRECTED
     Dates: start: 20160118
  2. RANITIDINE [Concomitant]
     Active Substance: RANITIDINE\RANITIDINE HYDROCHLORIDE
     Dosage: 2 DOSAGE FORMS DAILY;
     Dates: start: 20150422
  3. SOLIFENACIN [Concomitant]
     Active Substance: SOLIFENACIN
     Dosage: 1 DOSAGE FORMS DAILY;
     Dates: start: 20150130
  4. LACTULOSE. [Concomitant]
     Active Substance: LACTULOSE
     Dosage: TAKE 10MLS -15MLS TWICE DAILY
     Dates: start: 20150422
  5. CODEINE PHOSPHATE [Concomitant]
     Active Substance: CODEINE PHOSPHATE
     Dosage: TAKE ONE TO TWO  4 TIMES/DAY WHEN REQUIRED
     Dates: start: 20150422
  6. CITALOPRAM [Suspect]
     Active Substance: CITALOPRAM HYDROBROMIDE
     Dates: start: 20150928

REACTIONS (2)
  - Ocular hyperaemia [Recovered/Resolved]
  - Eye haemorrhage [Recovered/Resolved]

NARRATIVE: CASE EVENT DATE: 20151114
